FAERS Safety Report 10245956 (Version 1)
Quarter: 2014Q2

REPORT INFORMATION
  Report Type: Spontaneous
  Country: US (occurrence: US)
  Receive Date: 20140619
  Receipt Date: 20140619
  Transmission Date: 20141212
  Serious: Yes (Other)
  Sender: FDA-Public Use
  Company Number: US-THROMBOGENICS NV-JET-2014-025

PATIENT
  Sex: Female

DRUGS (1)
  1. JETREA [Suspect]
     Indication: PRODUCT USED FOR UNKNOWN INDICATION
     Dosage: 0.125 MG, ONE TIME DOSE
     Route: 031
     Dates: start: 20131220, end: 20131220

REACTIONS (7)
  - Retinal tear [Unknown]
  - Retinal detachment [Unknown]
  - Chromatopsia [Not Recovered/Not Resolved]
  - Visual acuity reduced [Recovered/Resolved]
  - Vision blurred [Unknown]
  - Pupillary reflex impaired [Recovered/Resolved]
  - Photopsia [Unknown]
